FAERS Safety Report 16340459 (Version 1)
Quarter: 2019Q2

REPORT INFORMATION
  Report Type: Report from Study
  Country: US (occurrence: US)
  Receive Date: 20190522
  Receipt Date: 20190522
  Transmission Date: 20190711
  Serious: Yes (Other)
  Sender: FDA-Public Use
  Company Number: US-ROCHE-2320880

PATIENT
  Age: 79 Year
  Sex: Male

DRUGS (3)
  1. DECITABINE. [Concomitant]
     Active Substance: DECITABINE
     Dosage: UNKNOWN
     Route: 065
  2. VENETOCLAX. [Suspect]
     Active Substance: VENETOCLAX
     Indication: ACUTE MYELOID LEUKAEMIA
     Dosage: UNKNOWN
     Route: 048
  3. AZACITIDINE. [Concomitant]
     Active Substance: AZACITIDINE
     Dosage: UNKNOWN
     Route: 065

REACTIONS (1)
  - Disease progression [Not Recovered/Not Resolved]
